FAERS Safety Report 17033348 (Version 1)
Quarter: 2019Q4

REPORT INFORMATION
  Report Type: Report from Study
  Country: EG (occurrence: EG)
  Receive Date: 20191114
  Receipt Date: 20191114
  Transmission Date: 20200122
  Serious: Yes (Other)
  Sender: FDA-Public Use
  Company Number: NVSC2019EG024563

PATIENT
  Age: 53 Year
  Sex: Female

DRUGS (1)
  1. ANASTROZOLE. [Suspect]
     Active Substance: ANASTROZOLE
     Indication: BREAST CANCER
     Dosage: 1 MG, QD
     Route: 065
     Dates: start: 201901, end: 201907

REACTIONS (2)
  - Diabetes mellitus [Not Recovered/Not Resolved]
  - Metastases to neck [Unknown]

NARRATIVE: CASE EVENT DATE: 2019
